FAERS Safety Report 6121944-9 (Version None)
Quarter: 2009Q1

REPORT INFORMATION
  Report Type: 
  Country: None (occurrence: None)
  Receive Date: 20090313
  Receipt Date: 20090304
  Transmission Date: 20090719
  Serious: Yes (Other)
  Sender: FDA-Public Use
  Company Number: TUK2008A00115

PATIENT
  Age: 45 Year
  Sex: Female

DRUGS (9)
  1. ACTOS [Suspect]
     Indication: DIABETES MELLITUS
     Dosage: 15 MG ORAL; 30 MG ORAL; 45 MG ORAL
     Route: 048
     Dates: start: 20040708, end: 20060711
  2. ACTOS [Suspect]
     Indication: DIABETES MELLITUS
     Dosage: 15 MG ORAL; 30 MG ORAL; 45 MG ORAL
     Route: 048
     Dates: start: 20060801, end: 20061201
  3. ACTOS [Suspect]
     Indication: DIABETES MELLITUS
     Dosage: 15 MG ORAL; 30 MG ORAL; 45 MG ORAL
     Route: 048
     Dates: start: 20061114, end: 20080605
  4. ATORVASTATIN CALCIUM [Concomitant]
  5. FERROUS FUMARATE [Concomitant]
  6. HUMALOG [Concomitant]
  7. LANTUS [Concomitant]
  8. LEVOTHYROXINE SODIUM [Concomitant]
  9. RAMIPRIL [Concomitant]

REACTIONS (6)
  - ANXIETY [None]
  - DYSPNOEA [None]
  - HYPOGLYCAEMIA UNAWARENESS [None]
  - LOWER RESPIRATORY TRACT INFECTION [None]
  - OEDEMA PERIPHERAL [None]
  - WITHDRAWAL SYNDROME [None]
